FAERS Safety Report 5289365-9 (Version None)
Quarter: 2007Q2

REPORT INFORMATION
  Report Type: 
  Country: None (occurrence: None)
  Receive Date: 20070404
  Receipt Date: 20070404
  Transmission Date: 20071010
  Serious: Yes (Other)
  Sender: FDA-Public Use
  Company Number: None

PATIENT
  Age: 42 Year
  Sex: Female
  Weight: 121.564 kg

DRUGS (1)
  1. HYZAAR [Suspect]
     Indication: HYPERTENSION
     Dosage: PO ONCE DAILY
     Route: 048
     Dates: start: 20070111, end: 20070125

REACTIONS (3)
  - FLUSHING [None]
  - HEADACHE [None]
  - RASH MACULAR [None]
